FAERS Safety Report 5284290-1 (Version None)
Quarter: 2007Q2

REPORT INFORMATION
  Report Type: 
  Country: None (occurrence: None)
  Receive Date: 20070403
  Receipt Date: 20070323
  Transmission Date: 20071010
  Serious: Yes (Hospitalization, Other)
  Sender: FDA-Public Use
  Company Number: FR-AMGEN-UK217334

PATIENT
  Sex: Female

DRUGS (9)
  1. PALIFERMIN - BLINDED [Suspect]
     Indication: MUCOSAL INFLAMMATION
     Route: 042
     Dates: start: 20070215, end: 20070223
  2. PALIFERMIN - PRIOR TO STUDY DRUG ADMINISTRATION [Suspect]
     Indication: MUCOSAL INFLAMMATION
  3. CEFPODOXIME PROXETIL [Concomitant]
  4. OFLOCET [Concomitant]
  5. DIFFU K [Concomitant]
  6. VALACYCLOVIR HCL [Concomitant]
  7. TRIFLUCAN [Concomitant]
  8. CETIRIZINE HCL [Concomitant]
  9. SODIUM BICARBONATE [Concomitant]

REACTIONS (3)
  - GASTROINTESTINAL DISORDER [None]
  - MALIGNANT MELANOMA [None]
  - WEIGHT DECREASED [None]
